FAERS Safety Report 15474302 (Version 2)
Quarter: 2019Q3

REPORT INFORMATION
  Report Type: Spontaneous
  Country: US (occurrence: US)
  Receive Date: 20181008
  Receipt Date: 20190806
  Transmission Date: 20191004
  Serious: No
  Sender: FDA-Public Use
  Company Number: US-PFIZER INC-2018397703

PATIENT
  Age: 67 Year
  Sex: Female

DRUGS (1)
  1. AROMASIN [Suspect]
     Active Substance: EXEMESTANE
     Indication: BREAST CANCER FEMALE
     Dosage: 25 MG, UNK

REACTIONS (4)
  - Discomfort [Unknown]
  - Alopecia [Unknown]
  - Autonomic nervous system imbalance [Unknown]
  - Hyperhidrosis [Unknown]
